FAERS Safety Report 12958330 (Version 1)
Quarter: 2016Q4

REPORT INFORMATION
  Report Type: Spontaneous
  Country: US (occurrence: US)
  Receive Date: 20161121
  Receipt Date: 20161121
  Transmission Date: 20170207
  Serious: No
  Sender: FDA-Public Use
  Company Number: US-AUROBINDO-AUR-APU-2014-07011

PATIENT
  Age: 6 Year
  Sex: Male

DRUGS (1)
  1. MELOXICAM AUROBINDO TABLETS 7.5 MG [Suspect]
     Active Substance: MELOXICAM
     Indication: PRODUCT USED FOR UNKNOWN INDICATION
     Route: 065

REACTIONS (2)
  - Food allergy [Recovered/Resolved]
  - Abdominal pain upper [Recovered/Resolved]
